FAERS Safety Report 6071858-8 (Version None)
Quarter: 2009Q1

REPORT INFORMATION
  Report Type: 
  Country: None (occurrence: None)
  Receive Date: 20090210
  Receipt Date: 20090130
  Transmission Date: 20090719
  Serious: Yes (Death, Disabling)
  Sender: FDA-Public Use
  Company Number: AU-CELGENEUS-008-20785-09011577

PATIENT
  Sex: Female
  Weight: 48 kg

DRUGS (5)
  1. THALIDOMIDE [Suspect]
     Indication: DRUG USE FOR UNKNOWN INDICATION
     Route: 048
     Dates: start: 20090105
  2. THALIDOMIDE [Suspect]
     Route: 048
     Dates: start: 20081016
  3. FUROSEMIDE [Concomitant]
     Route: 065
  4. ATENOLOL [Concomitant]
     Indication: HYPERTENSION
     Route: 065
  5. RAMIPRIL [Concomitant]
     Indication: HYPERTENSION
     Route: 065

REACTIONS (4)
  - ARTHRALGIA [None]
  - ASTHENIA [None]
  - NEUROPATHY PERIPHERAL [None]
  - OSTEOPOROSIS [None]
